FAERS Safety Report 16744199 (Version 1)
Quarter: 2019Q3

REPORT INFORMATION
  Report Type: Spontaneous
  Country: ES (occurrence: ES)
  Receive Date: 20190827
  Receipt Date: 20190827
  Transmission Date: 20191005
  Serious: Yes (Hospitalization)
  Sender: FDA-Public Use
  Company Number: PHHY2019ES197228

PATIENT
  Age: 56 Year
  Sex: Female

DRUGS (2)
  1. LORMETAZEPAM [Interacting]
     Active Substance: LORMETAZEPAM
     Indication: SUICIDE ATTEMPT
     Dosage: 14 MG, TOTAL
     Route: 048
     Dates: start: 20190813, end: 20190813
  2. PARACETAMOL [Suspect]
     Active Substance: ACETAMINOPHEN
     Indication: SUICIDE ATTEMPT
     Dosage: 10 G, TOTAL
     Route: 048
     Dates: start: 20190813, end: 20190813

REACTIONS (2)
  - Somnolence [Recovering/Resolving]
  - Balance disorder [Recovering/Resolving]

NARRATIVE: CASE EVENT DATE: 20190813
